FAERS Safety Report 4667018-5 (Version None)
Quarter: 2005Q2

REPORT INFORMATION
  Report Type: 
  Country: None (occurrence: None)
  Receive Date: 20050520
  Receipt Date: 20040409
  Transmission Date: 20051028
  Serious: Yes (Other)
  Sender: FDA-Public Use
  Company Number: PHEH2004US04085

PATIENT
  Age: 56 Year
  Sex: Female

DRUGS (1)
  1. AREDIA [Suspect]
     Dosage: UNK/UNK

REACTIONS (4)
  - JAW DISORDER [None]
  - OSTEONECROSIS [None]
  - SURGERY [None]
  - TOOTH EXTRACTION [None]
